FAERS Safety Report 20616293 (Version 1)
Quarter: 2022Q1

REPORT INFORMATION
  Report Type: Spontaneous
  Country: US (occurrence: None)
  Receive Date: 20220318
  Receipt Date: 20220318
  Transmission Date: 20220423
  Serious: Yes (Disabling, Other)
  Sender: FDA-Public Use
  Company Number: None

PATIENT
  Age: 70 Year
  Sex: Female
  Weight: 67.95 kg

DRUGS (2)
  1. PROHANCE [Suspect]
     Active Substance: GADOTERIDOL
     Indication: Fibrocystic breast disease
     Route: 042
     Dates: start: 20080911, end: 20180613
  2. PROHANCE [Suspect]
     Active Substance: GADOTERIDOL
     Indication: Magnetic resonance imaging

REACTIONS (7)
  - Fibromyalgia [None]
  - Hypermobility syndrome [None]
  - Neuropathy peripheral [None]
  - Myopathy [None]
  - Paraesthesia [None]
  - Brain neoplasm [None]
  - Mitochondrial toxicity [None]

NARRATIVE: CASE EVENT DATE: 20180613
